FAERS Safety Report 15974990 (Version 1)
Quarter: 2019Q1

REPORT INFORMATION
  Report Type: Spontaneous
  Country: US (occurrence: US)
  Receive Date: 20190218
  Receipt Date: 20190218
  Transmission Date: 20190418
  Serious: No
  Sender: FDA-Public Use
  Company Number: US-PFIZER INC-2019064999

PATIENT
  Age: 62 Year

DRUGS (1)
  1. GABAPENTIN. [Suspect]
     Active Substance: GABAPENTIN
     Dosage: UNK

REACTIONS (7)
  - Fall [Unknown]
  - Vision blurred [Unknown]
  - Balance disorder [Unknown]
  - Productive cough [Unknown]
  - Nausea [Unknown]
  - Dysstasia [Unknown]
  - Dizziness [Unknown]
